FAERS Safety Report 6846121-5 (Version None)
Quarter: 2010Q3

REPORT INFORMATION
  Report Type: 
  Country: None (occurrence: None)
  Receive Date: 20100715
  Receipt Date: 20071205
  Transmission Date: 20110219
  Serious: No
  Sender: FDA-Public Use
  Company Number: US-PFIZER INC-2007074277

PATIENT
  Sex: Female
  Weight: 64.9 kg

DRUGS (10)
  1. CHANTIX [Suspect]
     Indication: SMOKING CESSATION THERAPY
     Route: 048
     Dates: start: 20070630, end: 20070830
  2. SPIRIVA [Concomitant]
  3. VERAPAMIL [Concomitant]
  4. GEMFIBROZIL [Concomitant]
  5. MONTELUKAST SODIUM [Concomitant]
  6. PROTONIX [Concomitant]
  7. ALLEGRA [Concomitant]
  8. ALBUTEROL [Concomitant]
  9. LIPITOR [Concomitant]
  10. LISINOPRIL [Concomitant]

REACTIONS (2)
  - ALOPECIA [None]
  - HYPERTHYROIDISM [None]
